FAERS Safety Report 10982053 (Version 1)
Quarter: 2015Q2

REPORT INFORMATION
  Report Type: Spontaneous
  Country: GB (occurrence: GB)
  Receive Date: 20150403
  Receipt Date: 20150403
  Transmission Date: 20150821
  Serious: Yes (Death)
  Sender: FDA-Public Use
  Company Number: GB-009507513-1504GBR000751

PATIENT
  Age: 68 Year
  Sex: Male

DRUGS (1)
  1. DEXAMETHASONE TABLETS BP  2.0MG [Suspect]
     Active Substance: DEXAMETHASONE
     Indication: LUNG CANCER METASTATIC
     Dosage: 8 MG, 2 IN 1 D(TWICE DAILY)
     Route: 048
     Dates: start: 20150201, end: 20150223

REACTIONS (1)
  - Hyperglycaemia [Fatal]

NARRATIVE: CASE EVENT DATE: 20150218
